FAERS Safety Report 5654827-9 (Version None)
Quarter: 2008Q1

REPORT INFORMATION
  Report Type: 
  Country: None (occurrence: None)
  Receive Date: 20080307
  Receipt Date: 20070727
  Transmission Date: 20080703
  Serious: No
  Sender: FDA-Public Use
  Company Number: A0667442A

PATIENT
  Sex: Male

DRUGS (1)
  1. REQUIP [Suspect]
     Indication: RESTLESS LEGS SYNDROME
     Dosage: 1MG UNKNOWN
     Route: 048

REACTIONS (4)
  - ABDOMINAL PAIN UPPER [None]
  - RESTLESS LEGS SYNDROME [None]
  - SEDATION [None]
  - SOMNOLENCE [None]
